FAERS Safety Report 16945084 (Version 1)
Quarter: 2019Q4

REPORT INFORMATION
  Report Type: Report from Study
  Country: US (occurrence: US)
  Receive Date: 20191022
  Receipt Date: 20191022
  Transmission Date: 20200122
  Serious: Yes (Other)
  Sender: FDA-Public Use
  Company Number: US-JNJFOC-20190714111

PATIENT
  Age: 73 Year
  Sex: Male

DRUGS (2)
  1. IMBRUVICA [Suspect]
     Active Substance: IBRUTINIB
     Indication: CHRONIC LYMPHOCYTIC LEUKAEMIA
     Dosage: 140 MG, QD
     Route: 048
     Dates: start: 20190614
  2. IMBRUVICA [Suspect]
     Active Substance: IBRUTINIB
     Route: 048
     Dates: start: 20190627

REACTIONS (12)
  - Bowel movement irregularity [Recovered/Resolved]
  - Oral herpes [Unknown]
  - Depression [Unknown]
  - Diarrhoea [Unknown]
  - Asthenia [Unknown]
  - Sinusitis [Unknown]
  - Off label use [Unknown]
  - Sinonasal obstruction [Recovering/Resolving]
  - Inappropriate schedule of product administration [Unknown]
  - Fatigue [Unknown]
  - Constipation [Recovered/Resolved]
  - White blood cell count increased [Unknown]

NARRATIVE: CASE EVENT DATE: 201906
